FAERS Safety Report 23175444 (Version 1)
Quarter: 2023Q4

REPORT INFORMATION
  Report Type: Report from Study
  Country: MX (occurrence: MX)
  Receive Date: 20231113
  Receipt Date: 20231113
  Transmission Date: 20240110
  Serious: Yes (Other)
  Sender: FDA-Public Use
  Company Number: MX-ARIS GLOBAL-2023A-1371353

PATIENT
  Sex: Male
  Weight: 74 kg

DRUGS (5)
  1. EPIVAL [Suspect]
     Active Substance: DIVALPROEX SODIUM
     Indication: Bipolar disorder
     Dosage: ER OF 500MG?ONE PILL IN THE MORNING AND ONE PILL AT NIGHT
     Route: 048
     Dates: start: 2013
  2. AMANTADINE [Concomitant]
     Active Substance: AMANTADINE
     Indication: Product used for unknown indication
  3. ATORVASTATIN [Concomitant]
     Active Substance: ATORVASTATIN
     Indication: Infarction
     Dosage: 1 TABLET DAILY AT NIGHT
     Route: 048
  4. ZESTORETIC [Concomitant]
     Active Substance: HYDROCHLOROTHIAZIDE\LISINOPRIL
     Indication: Hypertension
     Dosage: ? TABLET DAILY
     Route: 048
  5. EPIVAL [Suspect]
     Active Substance: DIVALPROEX SODIUM
     Indication: Bipolar disorder
     Dosage: ONE PILL IN THE MORNING AND ONE AT NIGHT
     Route: 048
     Dates: start: 2019

REACTIONS (5)
  - Parkinson^s disease [Unknown]
  - Diabetes mellitus [Unknown]
  - Cerebral disorder [Unknown]
  - Weight decreased [Unknown]
  - Dementia [Unknown]

NARRATIVE: CASE EVENT DATE: 20180101
